FAERS Safety Report 5897088-8 (Version None)
Quarter: 2008Q3

REPORT INFORMATION
  Report Type: 
  Country: None (occurrence: None)
  Receive Date: 20080924
  Receipt Date: 20080701
  Transmission Date: 20090109
  Serious: Yes (Hospitalization)
  Sender: FDA-Public Use
  Company Number: US-ASTRAZENECA-2008UW13171

PATIENT
  Age: 34 Year
  Sex: Female

DRUGS (1)
  1. SEROQUEL [Suspect]
     Dosage: 25 TO 50 MG/DAY
     Route: 048

REACTIONS (4)
  - DROOLING [None]
  - DYSKINESIA [None]
  - HEADACHE [None]
  - INCREASED APPETITE [None]
